FAERS Safety Report 19653413 (Version 8)
Quarter: 2022Q1

REPORT INFORMATION
  Report Type: Spontaneous
  Country: BE (occurrence: BE)
  Receive Date: 20210804
  Receipt Date: 20220104
  Transmission Date: 20220424
  Serious: Yes (Other)
  Sender: FDA-Public Use
  Company Number: BE-GLAXOSMITHKLINE-BE2021EME107756

PATIENT
  Sex: Male
  Weight: 58 kg

DRUGS (48)
  1. FLUTICASONE PROPIONATE [Suspect]
     Active Substance: FLUTICASONE PROPIONATE
     Indication: Product used for unknown indication
     Dosage: 2 PUFF(S),
     Dates: start: 201707
  2. MEDROL [Suspect]
     Active Substance: METHYLPREDNISOLONE
     Indication: Sinusitis
  3. MEDROL [Suspect]
     Active Substance: METHYLPREDNISOLONE
     Indication: Asthma
     Dosage: UNK, 7 MG/L
  4. MEDROL [Suspect]
     Active Substance: METHYLPREDNISOLONE
     Dosage: UNK UNK, 4 MG/L
     Dates: start: 202010
  5. MEDROL [Suspect]
     Active Substance: METHYLPREDNISOLONE
  6. MEDROL [Suspect]
     Active Substance: METHYLPREDNISOLONE
     Dosage: UNK, 7 MG/L
  7. MEDROL [Suspect]
     Active Substance: METHYLPREDNISOLONE
     Dosage: UNK, 7 MG/L
  8. MEDROL [Suspect]
     Active Substance: METHYLPREDNISOLONE
  9. INFLUENZA VIRUS VACCINE [Suspect]
     Active Substance: INFLUENZA VIRUS VACCINE
     Indication: Product used for unknown indication
  10. NADROPARIN CALCIUM [Suspect]
     Active Substance: NADROPARIN CALCIUM
     Indication: Product used for unknown indication
  11. AZITHROMYCIN [Suspect]
     Active Substance: AZITHROMYCIN
     Indication: Product used for unknown indication
  12. PNEUMOCOCCAL VACCINE POLYVALENT NOS [Suspect]
     Active Substance: PNEUMOCOCCAL VACCINE POLYVALENT
     Indication: Pneumococcal infection
  13. AUGMENTIN [Suspect]
     Active Substance: AMOXICILLIN\CLAVULANATE POTASSIUM
     Indication: Product used for unknown indication
  14. CHOLECALCIFEROL [Suspect]
     Active Substance: CHOLECALCIFEROL
     Indication: Product used for unknown indication
  15. CHOLECALCIFEROL [Suspect]
     Active Substance: CHOLECALCIFEROL
  16. CHOLECALCIFEROL [Suspect]
     Active Substance: CHOLECALCIFEROL
  17. CHOLECALCIFEROL [Suspect]
     Active Substance: CHOLECALCIFEROL
  18. ASPIRIN [Suspect]
     Active Substance: ASPIRIN
     Indication: Product used for unknown indication
     Dosage: UNK
  19. ASPIRIN [Suspect]
     Active Substance: ASPIRIN
     Dosage: UNK
  20. ASPIRIN [Suspect]
     Active Substance: ASPIRIN
     Dosage: UNK
  21. ASPIRIN [Suspect]
     Active Substance: ASPIRIN
     Dosage: UNK
  22. AMOXICILLIN\CLAVULANATE POTASSIUM [Suspect]
     Active Substance: AMOXICILLIN\CLAVULANATE POTASSIUM
     Indication: Product used for unknown indication
  23. AMOXICILLIN\CLAVULANATE POTASSIUM [Suspect]
     Active Substance: AMOXICILLIN\CLAVULANATE POTASSIUM
  24. AMOXICILLIN\CLAVULANATE POTASSIUM [Suspect]
     Active Substance: AMOXICILLIN\CLAVULANATE POTASSIUM
  25. AMOXICILLIN\CLAVULANATE POTASSIUM [Suspect]
     Active Substance: AMOXICILLIN\CLAVULANATE POTASSIUM
  26. AMOXICILLIN [Suspect]
     Active Substance: AMOXICILLIN
     Indication: Product used for unknown indication
     Dosage: UNK
  27. AMOXICILLIN [Suspect]
     Active Substance: AMOXICILLIN
     Dosage: UNK
  28. AMOXICILLIN [Suspect]
     Active Substance: AMOXICILLIN
     Dosage: UNK
  29. AMOXICILLIN [Suspect]
     Active Substance: AMOXICILLIN
     Dosage: UNK
  30. ACETYLCYSTEINE [Suspect]
     Active Substance: ACETYLCYSTEINE
     Indication: Sputum retention
  31. ACETYLCYSTEINE [Suspect]
     Active Substance: ACETYLCYSTEINE
  32. ACETYLCYSTEINE [Suspect]
     Active Substance: ACETYLCYSTEINE
  33. ACETYLCYSTEINE [Suspect]
     Active Substance: ACETYLCYSTEINE
  34. FENOTEROL HYDROBROMIDE [Suspect]
     Active Substance: FENOTEROL HYDROBROMIDE
     Indication: Dyspnoea
     Dosage: 2 PUFF(S),
  35. FENOTEROL HYDROBROMIDE [Suspect]
     Active Substance: FENOTEROL HYDROBROMIDE
  36. FENOTEROL HYDROBROMIDE [Suspect]
     Active Substance: FENOTEROL HYDROBROMIDE
  37. FENOTEROL HYDROBROMIDE [Suspect]
     Active Substance: FENOTEROL HYDROBROMIDE
  38. MONTELUKAST SODIUM [Suspect]
     Active Substance: MONTELUKAST SODIUM
     Indication: Product used for unknown indication
  39. MONTELUKAST SODIUM [Suspect]
     Active Substance: MONTELUKAST SODIUM
  40. MONTELUKAST SODIUM [Suspect]
     Active Substance: MONTELUKAST SODIUM
  41. MONTELUKAST SODIUM [Suspect]
     Active Substance: MONTELUKAST SODIUM
  42. SPIRIVA [Suspect]
     Active Substance: TIOTROPIUM BROMIDE MONOHYDRATE
     Indication: Product used for unknown indication
     Dosage: 2 PUFF(S),
  43. AZITHROMYCIN [Suspect]
     Active Substance: AZITHROMYCIN
     Indication: Product used for unknown indication
  44. MOMETASONE [Suspect]
     Active Substance: MOMETASONE
     Indication: Product used for unknown indication
     Dosage: 2 PUFF(S),
  45. XARELTO [Suspect]
     Active Substance: RIVAROXABAN
     Indication: Pulmonary embolism
  46. FLUTICASONE FUROATE\VILANTEROL TRIFENATATE [Suspect]
     Active Substance: FLUTICASONE FUROATE\VILANTEROL TRIFENATATE
     Indication: Product used for unknown indication
     Dosage: 1 PUFF(S),  184-22 ?G/ACTUATION, 30 ACTUATION INHALER),
  47. NUCALA [Suspect]
     Active Substance: MEPOLIZUMAB
     Indication: Product used for unknown indication
     Route: 058
     Dates: start: 20171013
  48. NUCALA [Suspect]
     Active Substance: MEPOLIZUMAB
     Dosage: UNK
     Dates: start: 2019

REACTIONS (21)
  - Bronchiectasis [Unknown]
  - Drug ineffective [Unknown]
  - Asthma [Unknown]
  - Bacterial infection [Unknown]
  - Condition aggravated [Unknown]
  - Staphylococcal infection [Unknown]
  - Pulmonary embolism [Unknown]
  - Thrombosis [Unknown]
  - Neutrophil count abnormal [Unknown]
  - Sputum purulent [Unknown]
  - Disease recurrence [Unknown]
  - Disease recurrence [Unknown]
  - Disease recurrence [Unknown]
  - Dyspnoea [Unknown]
  - Productive cough [Unknown]
  - Renal colic [Unknown]
  - Cough [Unknown]
  - Upper-airway cough syndrome [Unknown]
  - Chronic sinusitis [Unknown]
  - Pain [Unknown]
  - Haematoma [Unknown]

NARRATIVE: CASE EVENT DATE: 20170501
